FAERS Safety Report 12566887 (Version 1)
Quarter: 2016Q3

REPORT INFORMATION
  Report Type: Spontaneous
  Country: US (occurrence: US)
  Receive Date: 20160718
  Receipt Date: 20160718
  Transmission Date: 20161109
  Serious: Yes (Death, Other)
  Sender: FDA-Public Use
  Company Number: US-CELGENEUS-USA-2016073487

PATIENT
  Age: 45 Year
  Sex: Female

DRUGS (1)
  1. ABRAXANE [Suspect]
     Active Substance: PACLITAXEL
     Indication: BREAST CANCER RECURRENT
     Dosage: 130 MILLIGRAM/SQ. METER
     Route: 065

REACTIONS (4)
  - Optic disc disorder [Unknown]
  - Visual acuity reduced [Recovering/Resolving]
  - Breast cancer [Fatal]
  - Cystoid macular oedema [Recovering/Resolving]
